FAERS Safety Report 16349068 (Version 2)
Quarter: 2019Q2

REPORT INFORMATION
  Report Type: Report from Study
  Country: DK (occurrence: DK)
  Receive Date: 20190523
  Receipt Date: 20190603
  Transmission Date: 20190711
  Serious: Yes (Hospitalization)
  Sender: FDA-Public Use
  Company Number: DK-JNJFOC-20190521030

PATIENT
  Age: 72 Year
  Sex: Male

DRUGS (8)
  1. LOSARTAN. [Concomitant]
     Active Substance: LOSARTAN
     Indication: BLOOD PRESSURE INCREASED
     Route: 065
     Dates: start: 20150127
  2. FELODIPINE ACTAVIS [Concomitant]
     Indication: HYPERTENSION
     Route: 065
     Dates: start: 20171228
  3. LOSARTAN. [Concomitant]
     Active Substance: LOSARTAN
     Indication: BLOOD PRESSURE INCREASED
     Route: 065
     Dates: start: 20171107
  4. PREDNISONE. [Suspect]
     Active Substance: PREDNISONE
     Indication: PROSTATE CANCER METASTATIC
     Dosage: MEDICAL KIT NUMBER: 500933 AND 500934
     Route: 048
     Dates: start: 20140826
  5. TRIPTORELIN [Concomitant]
     Active Substance: TRIPTORELIN
     Indication: PROSTATE CANCER
     Route: 065
     Dates: start: 20160309
  6. ABIRATERONE. [Suspect]
     Active Substance: ABIRATERONE ACETATE
     Indication: PROSTATE CANCER METASTATIC
     Dosage: MEDICAL KIT NUMBER : 81805, 81806
     Route: 048
     Dates: start: 20140826
  7. ABIRATERONE. [Suspect]
     Active Substance: ABIRATERONE ACETATE
     Route: 048
  8. UNIKALK FORTE [Concomitant]
     Indication: NUTRITIONAL SUPPLEMENTATION
     Route: 065
     Dates: start: 20170602

REACTIONS (1)
  - Transient ischaemic attack [Recovered/Resolved]

NARRATIVE: CASE EVENT DATE: 20190215
